FAERS Safety Report 25829921 (Version 2)
Quarter: 2025Q3

REPORT INFORMATION
  Report Type: Spontaneous
  Country: US (occurrence: US)
  Receive Date: 20250922
  Receipt Date: 20250926
  Transmission Date: 20251020
  Serious: Yes (Other)
  Sender: DR REDDYS
  Company Number: None

PATIENT
  Age: 41 Year
  Sex: Male

DRUGS (5)
  1. ICOSAPENT ETHYL [Suspect]
     Active Substance: ICOSAPENT ETHYL
     Indication: Hypertriglyceridaemia
  2. FENOFIBRATE [Suspect]
     Active Substance: FENOFIBRATE
     Indication: Hypertriglyceridaemia
  3. SIMVASTATIN [Suspect]
     Active Substance: SIMVASTATIN
     Indication: Hypertriglyceridaemia
  4. NIACIN [Suspect]
     Active Substance: NIACIN
     Indication: Hypertriglyceridaemia
  5. ICOSAPENT ETHYL [Concomitant]
     Active Substance: ICOSAPENT ETHYL
     Indication: Hypertriglyceridaemia

REACTIONS (2)
  - Atrial fibrillation [Unknown]
  - Flushing [Unknown]
